FAERS Safety Report 12420005 (Version 6)
Quarter: 2019Q3

REPORT INFORMATION
  Report Type: Report from Study
  Country: FR (occurrence: FR)
  Receive Date: 20160531
  Receipt Date: 20190820
  Transmission Date: 20191004
  Serious: Yes (Hospitalization, Other)
  Sender: FDA-Public Use
  Company Number: FR-CELGENEUS-FRA-2015066223

PATIENT
  Age: 68 Year
  Sex: Male
  Weight: 58 kg

DRUGS (8)
  1. RITUXIMAB. [Suspect]
     Active Substance: RITUXIMAB
     Route: 058
     Dates: start: 20140710, end: 20141218
  2. REVLIMID [Suspect]
     Active Substance: LENALIDOMIDE
     Indication: MANTLE CELL LYMPHOMA
     Dosage: 10 MILLIGRAM
     Route: 048
     Dates: start: 20150227, end: 20150514
  3. REVLIMID [Suspect]
     Active Substance: LENALIDOMIDE
     Dosage: 10 MILLIGRAM
     Route: 048
     Dates: end: 20150521
  4. RITUXIMAB. [Suspect]
     Active Substance: RITUXIMAB
     Indication: MANTLE CELL LYMPHOMA
     Dosage: 1400 MILLIGRAM
     Route: 058
     Dates: start: 20150226, end: 20150423
  5. MEDROL [Concomitant]
     Active Substance: METHYLPREDNISOLONE
     Indication: PAIN
     Route: 065
  6. RITUXIMAB. [Suspect]
     Active Substance: RITUXIMAB
     Route: 058
     Dates: start: 20150723
  7. MEDROL [Concomitant]
     Active Substance: METHYLPREDNISOLONE
     Indication: OEDEMA
  8. LYRICA [Concomitant]
     Active Substance: PREGABALIN
     Indication: PRODUCT USED FOR UNKNOWN INDICATION
     Route: 065

REACTIONS (3)
  - Temporal arteritis [Recovered/Resolved]
  - Herpes ophthalmic [Recovered/Resolved]
  - Eye pain [Recovered/Resolved]

NARRATIVE: CASE EVENT DATE: 20150517
